FAERS Safety Report 12203165 (Version 1)
Quarter: 2016Q1

REPORT INFORMATION
  Report Type: Spontaneous
  Country: US (occurrence: US)
  Receive Date: 20160323
  Receipt Date: 20160323
  Transmission Date: 20160526
  Serious: Yes (Other)
  Sender: FDA-Public Use
  Company Number: US-BEH-2016060248

PATIENT
  Sex: Female
  Weight: 99 kg

DRUGS (30)
  1. HIZENTRA [Suspect]
     Active Substance: HUMAN IMMUNOGLOBULIN G
     Indication: SELECTIVE IGA IMMUNODEFICIENCY
     Route: 058
  2. CLARITIN [Concomitant]
     Active Substance: LORATADINE
  3. ACETAMINOPHEN. [Concomitant]
     Active Substance: ACETAMINOPHEN
  4. SPIRIVA [Concomitant]
     Active Substance: TIOTROPIUM BROMIDE MONOHYDRATE
  5. ASPIRIN ADULT [Concomitant]
  6. DAILY MULTIPLE VITAMIN [Concomitant]
  7. LAMICTAL [Concomitant]
     Active Substance: LAMOTRIGINE
  8. BACTRIM [Concomitant]
     Active Substance: SULFAMETHOXAZOLE\TRIMETHOPRIM
  9. DIPHENHYDRAMINE. [Concomitant]
     Active Substance: DIPHENHYDRAMINE
  10. ADVAIR HFA [Concomitant]
     Active Substance: FLUTICASONE PROPIONATE\SALMETEROL XINAFOATE
  11. DUONEB [Concomitant]
     Active Substance: ALBUTEROL SULFATE\IPRATROPIUM BROMIDE
  12. HIZENTRA [Suspect]
     Active Substance: HUMAN IMMUNOGLOBULIN G
     Indication: SELECTIVE IGA IMMUNODEFICIENCY
     Route: 058
  13. AMOXICILLIN. [Concomitant]
     Active Substance: AMOXICILLIN
  14. OMEPRAZOLE. [Concomitant]
     Active Substance: OMEPRAZOLE
  15. AFRIN [Concomitant]
     Active Substance: OXYMETAZOLINE
  16. ALEVE [Concomitant]
     Active Substance: NAPROXEN SODIUM
  17. LASIX [Concomitant]
     Active Substance: FUROSEMIDE
  18. LOVASTATIN. [Concomitant]
     Active Substance: LOVASTATIN
  19. FERROUS SULFATE [Concomitant]
     Active Substance: FERROUS SULFATE\FERROUS SULFATE, DRIED
  20. EPIPEN [Concomitant]
     Active Substance: EPINEPHRINE
  21. REQUIP [Concomitant]
     Active Substance: ROPINIROLE HYDROCHLORIDE
  22. METFORMIN [Concomitant]
     Active Substance: METFORMIN HYDROCHLORIDE
  23. SINGULAIR [Concomitant]
     Active Substance: MONTELUKAST SODIUM
  24. CLOBETASOL [Concomitant]
     Active Substance: CLOBETASOL
  25. CARAFATE [Concomitant]
     Active Substance: SUCRALFATE
  26. SYNTHROID [Concomitant]
     Active Substance: LEVOTHYROXINE SODIUM
  27. LIDOCAINE/PRILOCAINE [Concomitant]
  28. OXYBUTYNIN [Concomitant]
     Active Substance: OXYBUTYNIN
  29. MOTRIN [Concomitant]
     Active Substance: IBUPROFEN
  30. VITAMIN D3 [Concomitant]
     Active Substance: CHOLECALCIFEROL

REACTIONS (1)
  - Respiratory tract infection [Unknown]
